FAERS Safety Report 8950944 (Version 1)
Quarter: 2012Q4

REPORT INFORMATION
  Report Type: 
  Country: US (occurrence: US)
  Receive Date: 20121207
  Receipt Date: 20121207
  Transmission Date: 20130627
  Serious: Yes (Other)
  Sender: FDA-Public Use
  Company Number: US-WATSON-2012-21538

PATIENT
  Age: 53 Year
  Sex: Male

DRUGS (4)
  1. VANCOMYCIN HCL (WATSON LABORATORIES) [Suspect]
     Indication: ANTIBIOTIC PROPHYLAXIS
     Dosage: UNK, unknown
     Route: 065
  2. PIPERACILLIN/TAZOBACTAM STRAGEN [Suspect]
     Indication: ANTIBIOTIC PROPHYLAXIS
     Dosage: UNK, unknown
     Route: 065
  3. FLUCONAZOLE [Concomitant]
     Indication: PROPHYLAXIS
     Dosage: UNK, unknown
     Route: 065
  4. MEROPENEM [Concomitant]
     Indication: ANTIBIOTIC PROPHYLAXIS
     Dosage: UNK, unknown
     Route: 065

REACTIONS (7)
  - Sepsis [Not Recovered/Not Resolved]
  - Drug resistance [Not Recovered/Not Resolved]
  - Multi-organ failure [None]
  - Pseudomonas infection [None]
  - Enterococcal infection [None]
  - Hypotension [None]
  - Post procedural bile leak [None]
